FAERS Safety Report 16023182 (Version 6)
Quarter: 2019Q2

REPORT INFORMATION
  Report Type: Spontaneous
  Country: DE (occurrence: DE)
  Receive Date: 20190301
  Receipt Date: 20190521
  Transmission Date: 20190711
  Serious: Yes (Hospitalization, Other)
  Sender: FDA-Public Use
  Company Number: DE-PFIZER INC-2019086386

PATIENT
  Sex: Female
  Weight: 76 kg

DRUGS (12)
  1. DEKRISTOLMIN [Suspect]
     Active Substance: CHOLECALCIFEROL
     Dosage: 20000 IU, WEEKLY (INTERNATIONAL UNIT, 1/WEEK)
     Route: 048
  2. EUTHYROX [Concomitant]
     Active Substance: LEVOTHYROXINE SODIUM
     Indication: HYPOTHYROIDISM
     Dosage: 88 UG, 1X/DAY (QD)
     Route: 048
     Dates: start: 2009
  3. OCREVUS [Suspect]
     Active Substance: OCRELIZUMAB
     Dosage: 300 MG, UNK
     Route: 042
     Dates: start: 20180516
  4. GABAPENTIN. [Suspect]
     Active Substance: GABAPENTIN
     Indication: NEURALGIA
     Dosage: 600 MG, DAILY
     Route: 048
     Dates: start: 201207
  5. MUCOFALK [PLANTAGO OVATA] [Suspect]
     Active Substance: HERBALS\PLANTAGO OVATA LEAF
     Dosage: EVERY 2-3 DAYS
     Route: 048
  6. OCREVUS [Suspect]
     Active Substance: OCRELIZUMAB
     Dosage: 600 MG, UNK
     Route: 042
     Dates: start: 20190207
  7. PANTOPRAZOLE [Suspect]
     Active Substance: PANTOPRAZOLE
     Indication: GASTRIC DISORDER
     Dosage: 40 MG, UNK
     Route: 048
  8. OCREVUS [Suspect]
     Active Substance: OCRELIZUMAB
     Indication: RELAPSING-REMITTING MULTIPLE SCLEROSIS
     Dosage: 600 MG, CYCLIC (EVERY 6 MONTHS)
     Route: 042
     Dates: start: 201805
  9. BISACODYL. [Suspect]
     Active Substance: BISACODYL
     Dosage: 5 MG, UNK
     Route: 048
  10. RIOPAN [MAGALDRATE] [Suspect]
     Active Substance: MAGALDRATE
     Dosage: UNK UNK, 1X/DAY
     Route: 048
  11. OCREVUS [Suspect]
     Active Substance: OCRELIZUMAB
     Dosage: 300 MG, UNK
     Route: 042
     Dates: start: 20180502
  12. MOVICOL [Suspect]
     Active Substance: POLYETHYLENE GLYCOL 3350\POTASSIUM CHLORIDE\SODIUM BICARBONATE\SODIUM CHLORIDE
     Dosage: UNK, 1X/DAY
     Route: 048

REACTIONS (8)
  - Alanine aminotransferase increased [Not Recovered/Not Resolved]
  - Gastritis [Unknown]
  - Pancreatitis necrotising [Unknown]
  - Hepatotoxicity [Not Recovered/Not Resolved]
  - Steatohepatitis [Unknown]
  - Gamma-glutamyltransferase increased [Not Recovered/Not Resolved]
  - Liver function test increased [Unknown]
  - Aspartate aminotransferase increased [Not Recovered/Not Resolved]

NARRATIVE: CASE EVENT DATE: 2018
